FAERS Safety Report 8058219-7 (Version None)
Quarter: 2012Q1

REPORT INFORMATION
  Report Type: 
  Country: None (occurrence: None)
  Receive Date: 20120111
  Receipt Date: 20120102
  Transmission Date: 20120608
  Serious: Yes (Other)
  Sender: FDA-Public Use
  Company Number: 2011SP054031

PATIENT
  Sex: Female

DRUGS (2)
  1. BETAMETHASONE [Suspect]
     Indication: EAR DISORDER
     Dates: start: 20111024, end: 20111103
  2. CALCI CHEW /00108001/ [Concomitant]

REACTIONS (4)
  - HYPOACUSIS [None]
  - EAR PAIN [None]
  - TYMPANIC MEMBRANE PERFORATION [None]
  - EAR HAEMORRHAGE [None]
